FAERS Safety Report 7677305-4 (Version None)
Quarter: 2011Q3

REPORT INFORMATION
  Report Type: 
  Country: None (occurrence: None)
  Receive Date: 20110811
  Receipt Date: 20110729
  Transmission Date: 20111222
  Serious: Yes (Other)
  Sender: FDA-Public Use
  Company Number: JP-ALLERGAN-1109381US

PATIENT
  Age: 4 Year
  Sex: Female
  Weight: 20 kg

DRUGS (1)
  1. EPINASTINE HYDROCHLORIDE [Suspect]
     Indication: URTICARIA CHRONIC
     Dosage: 1 G, QD
     Dates: start: 20110121, end: 20110701

REACTIONS (2)
  - OVERDOSE [None]
  - FEBRILE CONVULSION [None]
